FAERS Safety Report 4926946-3 (Version None)
Quarter: 2006Q1

REPORT INFORMATION
  Report Type: 
  Country: None (occurrence: None)
  Receive Date: 20060228
  Receipt Date: 20050916
  Transmission Date: 20060701
  Serious: No
  Sender: FDA-Public Use
  Company Number: US-GLAXOSMITHKLINE-A0574552A

PATIENT
  Age: 69 Year
  Sex: Male

DRUGS (5)
  1. LAMICTAL [Suspect]
     Dosage: 300MG TWICE PER DAY
     Route: 048
     Dates: start: 20040101
  2. DILANTIN [Concomitant]
  3. ACCUPRIL [Concomitant]
  4. ZOCOR [Concomitant]
  5. TYLENOL (CAPLET) [Concomitant]

REACTIONS (1)
  - RASH [None]
